FAERS Safety Report 25841855 (Version 2)
Quarter: 2025Q4

REPORT INFORMATION
  Report Type: Spontaneous
  Country: GB (occurrence: GB)
  Receive Date: 20250924
  Receipt Date: 20251013
  Transmission Date: 20260118
  Serious: Yes (Death)
  Sender: PFIZER
  Company Number: GB-PFIZER INC-PV202500113809

PATIENT
  Age: 70 Year
  Sex: Female

DRUGS (1)
  1. GENOTROPIN [Suspect]
     Active Substance: SOMATROPIN
     Dosage: 0.3 MG, 1X/DAY
     Route: 058

REACTIONS (1)
  - Death [Fatal]
